FAERS Safety Report 5128058-5 (Version None)
Quarter: 2006Q4

REPORT INFORMATION
  Report Type: 
  Country: None (occurrence: None)
  Receive Date: 20061010
  Receipt Date: 20060927
  Transmission Date: 20070319
  Serious: Yes (Other)
  Sender: FDA-Public Use
  Company Number: AUWYE036427SEP06

PATIENT
  Age: 55 Year
  Sex: Male

DRUGS (3)
  1. MYLOTARG [Suspect]
     Indication: ACUTE MYELOID LEUKAEMIA RECURRENT
     Dosage: ONE DOSE INTRAVENOUS
     Route: 042
     Dates: start: 20060918
  2. MEROPENEM (MEROPENEM) [Concomitant]
  3. VORICONAZOLE (VORICONAZOLE) [Concomitant]

REACTIONS (6)
  - BRONCHOSPASM [None]
  - DYSPNOEA [None]
  - HYPOXIA [None]
  - RESPIRATORY DISORDER [None]
  - TACHYCARDIA [None]
  - WHEEZING [None]
